FAERS Safety Report 11265212 (Version 2)
Quarter: 2015Q3

REPORT INFORMATION
  Report Type: Spontaneous
  Country: IN (occurrence: IN)
  Receive Date: 20150713
  Receipt Date: 20150730
  Transmission Date: 20151125
  Serious: Yes (Other)
  Sender: FDA-Public Use
  Company Number: IN-PFIZER INC-2015229032

PATIENT
  Age: 4 Year
  Weight: 15.5 kg

DRUGS (1)
  1. PHENYTOIN. [Suspect]
     Active Substance: PHENYTOIN
     Indication: EPILEPSY
     Dosage: UNK, 1X/DAY (THREE-FOURTHS OF A 100 MG TABLET EVERY NIGHT)

REACTIONS (4)
  - Anticonvulsant drug level increased [Recovered/Resolved]
  - Accidental overdose [Unknown]
  - Toxicity to various agents [Unknown]
  - Cerebellar atrophy [Not Recovered/Not Resolved]
